FAERS Safety Report 7222605-5 (Version None)
Quarter: 2011Q1

REPORT INFORMATION
  Report Type: 
  Country: None (occurrence: None)
  Receive Date: 20110112
  Receipt Date: 20110104
  Transmission Date: 20110831
  Serious: Yes (Other)
  Sender: FDA-Public Use
  Company Number: US-BAXTER-2011BH000236

PATIENT
  Age: 31 Year
  Sex: Female

DRUGS (11)
  1. SEVOFLURANE [Concomitant]
     Indication: GENERAL ANAESTHESIA
     Route: 065
  2. ATROPINE SULFATE [Suspect]
     Indication: BRADYCARDIA
     Route: 042
  3. SUCCINYLCHOLINE CHLORIDE [Concomitant]
     Indication: ANAESTHESIA
     Route: 065
  4. MORPHINE SULFATE [Suspect]
     Indication: ANAESTHESIA
     Route: 008
  5. OXYGEN [Concomitant]
     Indication: PRODUCT USED FOR UNKNOWN INDICATION
     Route: 065
  6. EPHEDRINE [Suspect]
     Indication: BRADYCARDIA
     Route: 042
  7. NITROUS OXIDE [Concomitant]
     Indication: GENERAL ANAESTHESIA
     Route: 065
  8. PHENYLEPHRINE HYDROCHLORIDE [Suspect]
     Indication: HYPOTENSION
     Route: 065
  9. FENTANYL CITRATE [Suspect]
     Indication: ANAESTHESIA
     Route: 008
  10. BUPIVACAINE, UNSPECIFIED [Suspect]
     Indication: ANAESTHESIA
     Route: 008
  11. PROPOFOL [Concomitant]
     Indication: ANAESTHESIA
     Route: 065

REACTIONS (9)
  - HYPOTENSION [None]
  - DRUG EXPOSURE DURING PREGNANCY [None]
  - BRADYCARDIA [None]
  - STRESS CARDIOMYOPATHY [None]
  - ANXIETY [None]
  - TACHYCARDIA [None]
  - CHEST DISCOMFORT [None]
  - SYNCOPE [None]
  - BLINDNESS [None]
